FAERS Safety Report 12981553 (Version 2)
Quarter: 2016Q4

REPORT INFORMATION
  Report Type: Spontaneous
  Country: CZ (occurrence: CZ)
  Receive Date: 20161129
  Receipt Date: 20161201
  Transmission Date: 20170207
  Serious: Yes (Other)
  Sender: FDA-Public Use
  Company Number: CZ-ROCHE-1855632

PATIENT
  Age: 68 Year
  Sex: Female
  Weight: 87 kg

DRUGS (10)
  1. CAPECITABINE. [Suspect]
     Active Substance: CAPECITABINE
     Dosage: REDUCED TO 80%
     Route: 065
     Dates: end: 201412
  2. CAPECITABINE. [Suspect]
     Active Substance: CAPECITABINE
     Indication: BREAST CANCER
     Route: 065
  3. ZOLEDRONIC ACID [Suspect]
     Active Substance: ZOLEDRONIC ACID
     Indication: BONE DISORDER
     Route: 042
     Dates: start: 20081229, end: 201102
  4. BONDRONAT [Suspect]
     Active Substance: IBANDRONIC ACID
     Dosage: RESTARTED.
     Route: 048
  5. TRASTUZUMAB [Concomitant]
     Active Substance: TRASTUZUMAB
     Indication: BREAST CANCER
     Route: 065
     Dates: start: 2008
  6. BONDRONAT [Suspect]
     Active Substance: IBANDRONIC ACID
     Indication: NEOPLASM MALIGNANT
     Dosage: DRUG STOPPED.
     Route: 048
     Dates: start: 20110209
  7. LAPATINIB [Suspect]
     Active Substance: LAPATINIB
     Indication: BREAST CANCER
     Dosage: DOSE REDUCED
     Route: 065
  8. EXEMESTANE. [Concomitant]
     Active Substance: EXEMESTANE
     Indication: BREAST CANCER
     Route: 065
  9. LAPATINIB [Suspect]
     Active Substance: LAPATINIB
     Dosage: 3 TABLETS A DAY.
     Route: 065
  10. DOCETAXEL. [Concomitant]
     Active Substance: DOCETAXEL
     Indication: BONE CANCER
     Dosage: AFTER SIX SERIES OF COMBINED TREATMENT WAS TERMINATED
     Route: 065
     Dates: start: 2008

REACTIONS (3)
  - Paronychia [Recovered/Resolved]
  - Palmar-plantar erythrodysaesthesia syndrome [Recovered/Resolved]
  - Osteonecrosis [Recovered/Resolved]

NARRATIVE: CASE EVENT DATE: 20111215
